FAERS Safety Report 25138879 (Version 2)
Quarter: 2025Q2

REPORT INFORMATION
  Report Type: Report from Study
  Country: US (occurrence: US)
  Receive Date: 20250331
  Receipt Date: 20250612
  Transmission Date: 20250717
  Serious: Yes (Hospitalization, Other)
  Sender: ABBVIE
  Company Number: US-ABBVIE-6202399

PATIENT
  Age: 57 Year
  Sex: Male

DRUGS (3)
  1. RINVOQ [Suspect]
     Active Substance: UPADACITINIB
     Indication: Ankylosing spondylitis
     Dosage: FORM STRENGTH 45MG
     Route: 048
     Dates: start: 202501
  2. RINVOQ [Suspect]
     Active Substance: UPADACITINIB
     Indication: Ankylosing spondylitis
     Route: 048
  3. HUMIRA [Concomitant]
     Active Substance: ADALIMUMAB
     Indication: Product used for unknown indication

REACTIONS (11)
  - Lumbar vertebral fracture [Recovering/Resolving]
  - Road traffic accident [Unknown]
  - Intestinal perforation [Recovering/Resolving]
  - Gastrointestinal infection [Recovering/Resolving]
  - Joint range of motion decreased [Unknown]
  - Thrombosis [Recovering/Resolving]
  - Fatigue [Unknown]
  - Pain [Unknown]
  - Back pain [Unknown]
  - Arthralgia [Unknown]
  - Back disorder [Unknown]

NARRATIVE: CASE EVENT DATE: 20250101
